FAERS Safety Report 7503506-1 (Version None)
Quarter: 2011Q2

REPORT INFORMATION
  Report Type: 
  Country: None (occurrence: None)
  Receive Date: 20110525
  Receipt Date: 20110506
  Transmission Date: 20111010
  Serious: Yes (Hospitalization)
  Sender: FDA-Public Use
  Company Number: GB-ROCHE-775814

PATIENT

DRUGS (3)
  1. OXALIPLATIN [Suspect]
     Dosage: (DOSING REGIMEN NOT PROVIDED) DELAYED BY ONE WEEK.
     Route: 042
     Dates: start: 20101215
  2. FLUOROURACIL [Suspect]
     Dosage: (DOSING REGIMEN NOT PROVIDED) DELAYED BY ONE WEEK.
     Route: 042
     Dates: start: 20101215
  3. BEVACIZUMAB [Suspect]
     Dosage: (DOSING REGIMEN NOT PROVIDED) DELAYED BY ONE WEEK.
     Route: 042
     Dates: start: 20101215

REACTIONS (2)
  - MALAISE [None]
  - DIARRHOEA [None]
